FAERS Safety Report 15580690 (Version 1)
Quarter: 2018Q4

REPORT INFORMATION
  Report Type: Spontaneous
  Country: US (occurrence: US)
  Receive Date: 20181102
  Receipt Date: 20181102
  Transmission Date: 20190205
  Serious: Yes (Other)
  Sender: FDA-Public Use
  Company Number: None

PATIENT
  Age: 35 Year
  Sex: Female
  Weight: 94.5 kg

DRUGS (3)
  1. WOMEN^S MULTIVITAMIN [Concomitant]
  2. LEVOFLOXACIN 500MG TABLET - ORANGE OBLONG ^I - 26^ [Suspect]
     Active Substance: LEVOFLOXACIN
     Indication: SINUSITIS BACTERIAL
     Dosage: ?          QUANTITY:10 TABLET(S);?
     Route: 048
     Dates: start: 20181029, end: 20181102
  3. PROBIOTICS [Concomitant]
     Active Substance: PROBIOTICS NOS

REACTIONS (10)
  - Impaired driving ability [None]
  - Insomnia [None]
  - Autoscopy [None]
  - Diarrhoea [None]
  - Dizziness [None]
  - Nightmare [None]
  - Abnormal dreams [None]
  - Muscle spasms [None]
  - Gait disturbance [None]
  - Nausea [None]

NARRATIVE: CASE EVENT DATE: 20181101
